FAERS Safety Report 15953454 (Version 1)
Quarter: 2019Q1

REPORT INFORMATION
  Report Type: Spontaneous
  Country: IT (occurrence: IT)
  Receive Date: 20190212
  Receipt Date: 20190212
  Transmission Date: 20190417
  Serious: Yes (Other)
  Sender: FDA-Public Use
  Company Number: IT-GILEAD-2019-0390253

PATIENT
  Age: 64 Year
  Sex: Female

DRUGS (1)
  1. EPCLUSA [Suspect]
     Active Substance: SOFOSBUVIR\VELPATASVIR
     Indication: HEPATITIS C
     Route: 065
     Dates: start: 20170923, end: 20171216

REACTIONS (2)
  - Treatment failure [Not Recovered/Not Resolved]
  - Hepatitis C RNA increased [Not Recovered/Not Resolved]

NARRATIVE: CASE EVENT DATE: 20180315
